FAERS Safety Report 10447132 (Version 1)
Quarter: 2014Q3

REPORT INFORMATION
  Report Type: Spontaneous
  Country: US (occurrence: US)
  Receive Date: 20140911
  Receipt Date: 20140911
  Transmission Date: 20150326
  Serious: No
  Sender: FDA-Public Use
  Company Number: US-PFIZER INC-2014251975

PATIENT
  Age: 61 Year
  Sex: Male
  Weight: 104.31 kg

DRUGS (2)
  1. LYRICA [Suspect]
     Active Substance: PREGABALIN
     Indication: FIBROMYALGIA
     Dosage: UNK,3X/DAY
     Route: 048
     Dates: start: 2012
  2. WARFARIN [Concomitant]
     Active Substance: WARFARIN
     Indication: THROMBOSIS
     Dosage: 6 MG, UNK

REACTIONS (1)
  - Erectile dysfunction [Unknown]
